FAERS Safety Report 8605031-3 (Version None)
Quarter: 2012Q3

REPORT INFORMATION
  Report Type: 
  Country: None (occurrence: None)
  Receive Date: 20120808
  Receipt Date: 20120808
  Transmission Date: 20120928
  Serious: Yes (Life-Threatening)
  Sender: FDA-Public Use
  Company Number: None

PATIENT
  Age: 66 Year
  Sex: Male
  Weight: 89.8 kg

DRUGS (1)
  1. PROTAMINE SULFATE [Suspect]
     Indication: SURGERY
     Dosage: 1 MG OTHER IV
     Route: 042
     Dates: start: 20120301, end: 20120301

REACTIONS (3)
  - ANAPHYLACTIC REACTION [None]
  - HYPOTENSION [None]
  - NO THERAPEUTIC RESPONSE [None]
